FAERS Safety Report 13360527 (Version 1)
Quarter: 2017Q1

REPORT INFORMATION
  Report Type: Spontaneous
  Country: FR (occurrence: FR)
  Receive Date: 20170322
  Receipt Date: 20170322
  Transmission Date: 20170429
  Serious: Yes (Hospitalization, Other)
  Sender: FDA-Public Use
  Company Number: FR-GLAXOSMITHKLINE-FR2017GSK039606

PATIENT
  Age: 55 Year
  Sex: Male

DRUGS (18)
  1. VOLTARENE [Suspect]
     Active Substance: DICLOFENAC SODIUM
     Indication: PRODUCT USED FOR UNKNOWN INDICATION
     Dosage: UNK
     Route: 048
     Dates: start: 20170120, end: 20170120
  2. OPDIVO [Suspect]
     Active Substance: NIVOLUMAB
     Indication: MALIGNANT MELANOMA
     Dosage: UNK
     Route: 051
     Dates: start: 20151013, end: 20170110
  3. OPDIVO [Suspect]
     Active Substance: NIVOLUMAB
     Dosage: WEEK 8 NIVOLUMAB
     Route: 051
     Dates: start: 20151215
  4. OPDIVO [Suspect]
     Active Substance: NIVOLUMAB
     Dosage: WEEK 20 NIVOLUMAB
     Route: 051
     Dates: start: 20160308
  5. OPDIVO [Suspect]
     Active Substance: NIVOLUMAB
     Dosage: WEEK 5 NIVOLUMAB
     Route: 051
     Dates: start: 20151124
  6. OPDIVO [Suspect]
     Active Substance: NIVOLUMAB
     Dosage: WEEK 14 NIVOLUMAB
     Route: 051
     Dates: start: 20160126
  7. OPDIVO [Suspect]
     Active Substance: NIVOLUMAB
     Dosage: COURSE 18 NIVOLUMAB
     Route: 051
     Dates: start: 20161004
  8. YERVOY [Concomitant]
     Active Substance: IPILIMUMAB
     Dosage: UNK
     Dates: start: 20150902
  9. STILNOX [Concomitant]
     Active Substance: ZOLPIDEM TARTRATE
  10. DIFFU K [Concomitant]
     Active Substance: POTASSIUM CHLORIDE
  11. OPDIVO [Suspect]
     Active Substance: NIVOLUMAB
     Dosage: WEEK 27 NIVOLUMAB
     Route: 051
     Dates: start: 20160503
  12. LEVOTHYROX [Concomitant]
     Active Substance: LEVOTHYROXINE
  13. CORTANCYL [Concomitant]
     Active Substance: PREDNISONE
  14. DAFALGAN [Concomitant]
     Active Substance: ACETAMINOPHEN
  15. OPDIVO [Suspect]
     Active Substance: NIVOLUMAB
     Dosage: WEEK 11 NIVOLUMAB
     Route: 051
     Dates: start: 20160105
  16. OPDIVO [Suspect]
     Active Substance: NIVOLUMAB
     Dosage: COURSE 25 NIVOLUMAB
     Route: 051
     Dates: start: 20170110
  17. CACIT VITAMINE D3 [Concomitant]
     Active Substance: CALCIUM CARBONATE\CHOLECALCIFEROL
  18. OPDIVO [Suspect]
     Active Substance: NIVOLUMAB
     Dosage: WEEK 2 NIVOLUMAB
     Route: 051
     Dates: start: 20151103

REACTIONS (2)
  - Tubulointerstitial nephritis [Recovering/Resolving]
  - Acute kidney injury [Recovering/Resolving]

NARRATIVE: CASE EVENT DATE: 20170121
